FAERS Safety Report 19115232 (Version 2)
Quarter: 2021Q2

REPORT INFORMATION
  Report Type: Report from Study
  Country: US (occurrence: US)
  Receive Date: 20210409
  Receipt Date: 20210426
  Transmission Date: 20210717
  Serious: Yes (Hospitalization, Other)
  Sender: FDA-Public Use
  Company Number: US-JNJFOC-20210359442

PATIENT
  Age: 64 Year
  Sex: Female
  Weight: 101.4 kg

DRUGS (5)
  1. ELIQUIS [Concomitant]
     Active Substance: APIXABAN
  2. EPOPROSTENOL SODIUM. [Suspect]
     Active Substance: EPOPROSTENOL SODIUM
     Route: 042
  3. OPSUMIT [Concomitant]
     Active Substance: MACITENTAN
  4. EPOPROSTENOL SODIUM. [Suspect]
     Active Substance: EPOPROSTENOL SODIUM
     Indication: PULMONARY HYPERTENSION
     Route: 042
  5. REVATIO [Concomitant]
     Active Substance: SILDENAFIL CITRATE

REACTIONS (20)
  - Bradycardia [Unknown]
  - Dizziness [Unknown]
  - Flushing [Unknown]
  - Headache [Not Recovered/Not Resolved]
  - Fluid overload [Recovered/Resolved]
  - Malaise [Unknown]
  - Electrolyte imbalance [Recovering/Resolving]
  - Device failure [Unknown]
  - Haemorrhage [Unknown]
  - Dyspnoea [Recovering/Resolving]
  - Fatigue [Unknown]
  - Back pain [Unknown]
  - Palpitations [Unknown]
  - Pain in jaw [Unknown]
  - Asthma [Unknown]
  - Chest pain [Unknown]
  - Hypertension [Unknown]
  - Hyperhidrosis [Unknown]
  - Nausea [Unknown]
  - Diarrhoea [Unknown]

NARRATIVE: CASE EVENT DATE: 20210326
